FAERS Safety Report 4321882-8 (Version None)
Quarter: 2004Q1

REPORT INFORMATION
  Report Type: 
  Country: None (occurrence: None)
  Receive Date: 20040322
  Receipt Date: 20040114
  Transmission Date: 20041129
  Serious: No
  Sender: FDA-Public Use
  Company Number: A-US2004-04278

PATIENT
  Age: 75 Year
  Sex: Male

DRUGS (9)
  1. TRACLEER [Suspect]
     Indication: PULMONARY FIBROSIS
     Dosage: 125 MG, BID, ORAL
     Route: 048
  2. ASPIRIN [Concomitant]
  3. PRILOSEC [Concomitant]
  4. ZESTRIL [Concomitant]
  5. COREG [Concomitant]
  6. VIOXX [Concomitant]
  7. ZOCOR [Concomitant]
  8. WELLBUTRIN [Concomitant]
  9. XANAX [Concomitant]

REACTIONS (1)
  - PRURITUS [None]
